FAERS Safety Report 4414242-2 (Version None)
Quarter: 2004Q3

REPORT INFORMATION
  Report Type: 
  Country: None (occurrence: None)
  Receive Date: 20040729
  Receipt Date: 20040716
  Transmission Date: 20050211
  Serious: Yes (Other)
  Sender: FDA-Public Use
  Company Number: EMADSS2002005990

PATIENT
  Age: 40 Year
  Sex: Male

DRUGS (6)
  1. REMICADE [Suspect]
     Indication: SPONDYLOSIS
     Dosage: SEE IMAGE
     Route: 042
     Dates: start: 20011123, end: 20011123
  2. REMICADE [Suspect]
     Indication: SPONDYLOSIS
     Dosage: SEE IMAGE
     Route: 042
     Dates: start: 20011218, end: 20011218
  3. REMICADE [Suspect]
     Indication: SPONDYLOSIS
     Dosage: SEE IMAGE
     Route: 042
     Dates: start: 20020111, end: 20020111
  4. REMICADE [Suspect]
     Indication: SPONDYLOSIS
     Dosage: SEE IMAGE
     Route: 042
     Dates: start: 20020514, end: 20020514
  5. REMICADE [Suspect]
     Indication: SPONDYLOSIS
     Dosage: SEE IMAGE
     Route: 042
     Dates: start: 20020709, end: 20020709
  6. REMICADE [Suspect]
     Indication: SPONDYLOSIS
     Dosage: SEE IMAGE
     Route: 042
     Dates: start: 20020905, end: 20020905

REACTIONS (5)
  - ANKYLOSING SPONDYLITIS [None]
  - BUDD-CHIARI SYNDROME [None]
  - DRUG INEFFECTIVE [None]
  - HAEMOGLOBIN DECREASED [None]
  - PAROXYSMAL NOCTURNAL HAEMOGLOBINURIA [None]
